FAERS Safety Report 16825367 (Version 1)
Quarter: 2019Q3

REPORT INFORMATION
  Report Type: Spontaneous
  Country: CN (occurrence: CN)
  Receive Date: 20190919
  Receipt Date: 20190919
  Transmission Date: 20191005
  Serious: Yes (Other)
  Sender: FDA-Public Use
  Company Number: CN-BAXTER-2019BAX018190

PATIENT
  Age: 62 Year
  Sex: Female
  Weight: 65 kg

DRUGS (12)
  1. ENDOXAN [Suspect]
     Active Substance: CYCLOPHOSPHAMIDE
     Indication: BREAST CANCER FEMALE
     Dosage: FIRST AND SECOND CHEMOTHERAPY, ENDOXAN + NS
     Route: 042
  2. 0.9% SODIUM CHLORIDE INJECTION [Suspect]
     Active Substance: SODIUM CHLORIDE
     Dosage: THIRD CHEMOTHERAPY, ENDOXAN 1000 MG + NS 50ML
     Route: 042
     Dates: start: 20190727, end: 20190727
  3. TAXOTERE [Suspect]
     Active Substance: DOCETAXEL
     Dosage: THIRD CHEMOTHERAPY, TAXOTERE 120 MG + NS 250ML
     Route: 041
     Dates: start: 20190727, end: 20190727
  4. 0.9% SODIUM CHLORIDE INJECTION [Suspect]
     Active Substance: SODIUM CHLORIDE
     Dosage: DOSE RE-INTRODUCTION, ENDOXAN + NS
     Route: 042
  5. ENDOXAN [Suspect]
     Active Substance: CYCLOPHOSPHAMIDE
     Dosage: DOSE RE-INTRODUCTION, ENDOXAN + NS
     Route: 042
  6. 0.9% SODIUM CHLORIDE INJECTION [Suspect]
     Active Substance: SODIUM CHLORIDE
     Dosage: FIRST AND SECOND CHEMOTHERAPY, TAXOTERE + NS
     Route: 041
  7. 0.9% SODIUM CHLORIDE INJECTION [Suspect]
     Active Substance: SODIUM CHLORIDE
     Dosage: DOSE RE-INTRODUCTION, TAXOTERE + NS
     Route: 041
  8. TAXOTERE [Suspect]
     Active Substance: DOCETAXEL
     Dosage: DOSE RE-INTRODUCTION, TAXOTERE + NS
     Route: 041
  9. 0.9% SODIUM CHLORIDE INJECTION [Suspect]
     Active Substance: SODIUM CHLORIDE
     Indication: MEDICATION DILUTION
     Dosage: FIRST AND SECOND CHEMOTHERAPY, ENDOXAN + NS
     Route: 042
  10. ENDOXAN [Suspect]
     Active Substance: CYCLOPHOSPHAMIDE
     Dosage: ENDOXAN 1000 MG + NS 50ML
     Route: 042
     Dates: start: 20190727, end: 20190727
  11. 0.9% SODIUM CHLORIDE INJECTION [Suspect]
     Active Substance: SODIUM CHLORIDE
     Dosage: THIRD CHEMOTHERAPY, TAXOTERE 120 MG + NS 250ML
     Route: 041
     Dates: start: 20190727, end: 20190727
  12. TAXOTERE [Suspect]
     Active Substance: DOCETAXEL
     Indication: BREAST CANCER FEMALE
     Dosage: FIRST AND SECOND CHEMOTHERAPY, TAXOTERE + NS
     Route: 041

REACTIONS (2)
  - Agranulocytosis [Recovered/Resolved]
  - Leukopenia [Recovered/Resolved]

NARRATIVE: CASE EVENT DATE: 20190802
